FAERS Safety Report 13245621 (Version 1)
Quarter: 2017Q1

REPORT INFORMATION
  Report Type: Other
  Country: IT (occurrence: IT)
  Receive Date: 20170217
  Receipt Date: 20170217
  Transmission Date: 20170428
  Serious: No
  Sender: FDA-Public Use
  Company Number: IT-PERNIX THERAPEUTICS-2016PT000018

PATIENT

DRUGS (2)
  1. BECLOMETHASONE DIPROPIONATE        /00212602/ [Concomitant]
     Active Substance: BECLOMETHASONE DIPROPIONATE
     Dosage: NASAL SPRAY
  2. ISOCEF [Suspect]
     Active Substance: CEFTIBUTEN
     Indication: PHARYNGOTONSILLITIS
     Dosage: 400 MG, DAILY
     Route: 048
     Dates: start: 20160122, end: 20160123

REACTIONS (1)
  - Urticaria [Recovered/Resolved]

NARRATIVE: CASE EVENT DATE: 20160123
